FAERS Safety Report 6726397-5 (Version None)
Quarter: 2010Q2

REPORT INFORMATION
  Report Type: 
  Country: None (occurrence: None)
  Receive Date: 20100514
  Receipt Date: 20100508
  Transmission Date: 20101027
  Serious: Yes (Hospitalization)
  Sender: FDA-Public Use
  Company Number: B0652436A

PATIENT
  Age: 45 Year
  Sex: Female

DRUGS (16)
  1. LAMICTAL [Suspect]
     Indication: DRUG USE FOR UNKNOWN INDICATION
     Dosage: 125MG PER DAY
     Route: 065
     Dates: start: 20100129, end: 20100204
  2. TRILEPTAL [Suspect]
     Indication: DRUG USE FOR UNKNOWN INDICATION
     Dosage: 600MG PER DAY
     Route: 065
     Dates: start: 20100125, end: 20100131
  3. NEXIUM [Suspect]
     Indication: DRUG USE FOR UNKNOWN INDICATION
     Dosage: 20MG PER DAY
     Route: 065
     Dates: start: 20100123, end: 20100204
  4. SERTRALINE HYDROCHLORIDE [Suspect]
     Indication: DRUG USE FOR UNKNOWN INDICATION
     Dosage: 50MG PER DAY
     Route: 065
     Dates: start: 20100123, end: 20100203
  5. VOLTAREN [Suspect]
     Indication: DRUG USE FOR UNKNOWN INDICATION
     Dosage: 50MG PER DAY
     Route: 065
     Dates: start: 20100131, end: 20100203
  6. LAMICTAL [Concomitant]
     Dosage: 100MG PER DAY
     Route: 065
     Dates: end: 20100128
  7. CREON [Concomitant]
  8. LANSOPRAZOL [Concomitant]
     Dosage: 20MG PER DAY
     Route: 065
  9. LAMICTAL [Concomitant]
     Route: 065
     Dates: start: 20100205, end: 20100211
  10. TRILEPTAL [Concomitant]
     Dosage: 300MG PER DAY
     Route: 065
     Dates: start: 20100201, end: 20100201
  11. NEXIUM [Concomitant]
     Dosage: 40MG PER DAY
     Route: 065
     Dates: start: 20100203, end: 20100205
  12. PANTOPRAZOLE [Concomitant]
     Dosage: 40MG PER DAY
     Route: 065
     Dates: start: 20100206
  13. LAMICTAL [Concomitant]
     Dosage: 200MG PER DAY
     Route: 065
  14. VOLTAREN [Concomitant]
     Dosage: 100MG PER DAY
     Route: 065
     Dates: start: 20100128, end: 20100130
  15. LORAZEPAM [Concomitant]
     Dosage: 1.5MG PER DAY
     Route: 065
     Dates: start: 20100202, end: 20100202
  16. LORAZEPAM [Concomitant]
     Dosage: 1MG PER DAY
     Route: 065
     Dates: start: 20100203

REACTIONS (1)
  - HYPONATRAEMIA [None]
